FAERS Safety Report 17305923 (Version 2)
Quarter: 2020Q1

REPORT INFORMATION
  Report Type: Report from Study
  Country: US (occurrence: US)
  Receive Date: 20200123
  Receipt Date: 20200131
  Transmission Date: 20200409
  Serious: Yes (Hospitalization)
  Sender: FDA-Public Use
  Company Number: US-PFIZER INC-2020017748

PATIENT
  Age: 4 Year
  Sex: Male
  Weight: 15.7 kg

DRUGS (46)
  1. VINCRISTINE SULFATE. [Suspect]
     Active Substance: VINCRISTINE SULFATE
     Dosage: 1 MG, UNK
     Route: 042
     Dates: start: 20190705, end: 20190920
  2. CYTARABINE. [Suspect]
     Active Substance: CYTARABINE
     Dosage: 45 MG, 1X/DAY, MILLIGRAM/SQ. METER;
     Route: 042
     Dates: start: 20190507, end: 20190510
  3. CYTARABINE. [Suspect]
     Active Substance: CYTARABINE
     Dosage: 45 MG, 1X/DAY, MILLIGRAM/SQ. METER;
     Route: 042
     Dates: start: 20190528, end: 20190531
  4. CYTARABINE. [Suspect]
     Active Substance: CYTARABINE
     Dosage: 45 MG, 1X/DAY, MILLIGRAM/SQ. METER;
     Route: 042
     Dates: start: 20190604, end: 20190606
  5. CYTARABINE. [Suspect]
     Active Substance: CYTARABINE
     Dosage: 53 MG, 1X/DAY, MILLIGRAM/SQ. METER;
     Route: 042
     Dates: start: 20191021
  6. METHOTREXATE SODIUM. [Suspect]
     Active Substance: METHOTREXATE SODIUM
     Indication: ACUTE LYMPHOCYTIC LEUKAEMIA
     Dosage: 12 MG, ONCE
     Route: 037
     Dates: start: 20190429, end: 20190429
  7. DOXORUBICIN HCL [Suspect]
     Active Substance: DOXORUBICIN HYDROCHLORIDE
     Dosage: 17 MG, ONCE
     Route: 042
     Dates: start: 20190920
  8. PEGASPARGASE [Suspect]
     Active Substance: PEGASPARGASE
     Dosage: 1550 IU, ONCE, IU/M2
     Route: 042
     Dates: start: 20190611, end: 20190611
  9. NORVASC [Concomitant]
     Active Substance: AMLODIPINE BESYLATE
     Dosage: UNK
     Dates: start: 20190417
  10. CYTARABINE. [Suspect]
     Active Substance: CYTARABINE
     Dosage: 53 MG, 1X/DAY, MILLIGRAM/SQ. METER;
     Route: 042
     Dates: start: 20191014, end: 20191017
  11. DEXAMETHASONE. [Suspect]
     Active Substance: DEXAMETHASONE
     Dosage: 3.5 MG X 7 DAYS, TABLET
     Route: 048
     Dates: start: 20190920
  12. MERCAPTOPURINE. [Suspect]
     Active Substance: MERCAPTOPURINE
     Indication: ACUTE LYMPHOCYTIC LEUKAEMIA
     Dosage: 36 MG, 1X/DAY  TABLET
     Route: 048
     Dates: start: 20190430, end: 20190513
  13. TENEX [Concomitant]
     Active Substance: GUANFACINE HYDROCHLORIDE
     Dosage: UNK
     Dates: start: 20190618
  14. METHOTREXATE SODIUM. [Suspect]
     Active Substance: METHOTREXATE SODIUM
     Dosage: 3250 MG, ONCE
     Route: 042
     Dates: start: 20190719, end: 20190719
  15. METHOTREXATE SODIUM. [Suspect]
     Active Substance: METHOTREXATE SODIUM
     Dosage: 3250 MG
     Route: 042
     Dates: start: 20190816
  16. METHOTREXATE SODIUM. [Suspect]
     Active Substance: METHOTREXATE SODIUM
     Dosage: 12 MG, ONCE
     Route: 037
     Dates: start: 20190802, end: 20190802
  17. METHOTREXATE SODIUM. [Suspect]
     Active Substance: METHOTREXATE SODIUM
     Dosage: 12 MG, ONCE
     Route: 037
     Dates: start: 20190906, end: 20190906
  18. METHOTREXATE SODIUM. [Suspect]
     Active Substance: METHOTREXATE SODIUM
     Dosage: 12 MG, ONCE
     Route: 037
     Dates: start: 20191021
  19. CYCLOPHOSPHAMIDE. [Suspect]
     Active Substance: CYCLOPHOSPHAMIDE
     Dosage: 620 MG, ONCE
     Route: 042
     Dates: start: 20190528, end: 20190528
  20. CYCLOPHOSPHAMIDE. [Suspect]
     Active Substance: CYCLOPHOSPHAMIDE
     Dosage: 710 MG, UNK
     Route: 042
     Dates: start: 20191014
  21. DEXAMETHASONE. [Suspect]
     Active Substance: DEXAMETHASONE
     Indication: ACUTE LYMPHOCYTIC LEUKAEMIA
     Dosage: 3.5 MG X 7 DAYS, TABLET
     Route: 048
     Dates: start: 20190906, end: 20190912
  22. METHOTREXATE SODIUM. [Suspect]
     Active Substance: METHOTREXATE SODIUM
     Indication: ACUTE LYMPHOCYTIC LEUKAEMIA
     Dosage: 3250 MG, ONCE
     Route: 042
     Dates: start: 20190705, end: 20190705
  23. METHOTREXATE SODIUM. [Suspect]
     Active Substance: METHOTREXATE SODIUM
     Dosage: 12 MG, ONCE
     Route: 037
     Dates: start: 20190507, end: 20190507
  24. DOXORUBICIN HCL [Suspect]
     Active Substance: DOXORUBICIN HYDROCHLORIDE
     Dosage: 17 MG, ONCE
     Route: 042
     Dates: start: 20190913, end: 20190913
  25. INCB018424 [Suspect]
     Active Substance: RUXOLITINIB
     Dosage: 30 MG, 2X/DAY, TABLET, INTERIM MAINTENANCE: 14 DAYS ON 14 DAYS OFF
     Route: 048
     Dates: start: 20190705, end: 20190815
  26. INCB018424 [Suspect]
     Active Substance: RUXOLITINIB
     Dosage: 30 MG, 2X/DAY, TABLET
     Route: 048
     Dates: start: 20191014
  27. PEGASPARGASE [Suspect]
     Active Substance: PEGASPARGASE
     Dosage: 1675 IU, IU/M2
     Route: 042
     Dates: start: 20190909, end: 20190909
  28. PEGASPARGASE [Suspect]
     Active Substance: PEGASPARGASE
     Dosage: 1775 IU, IU/M2
     Route: 042
     Dates: start: 20191028
  29. MERCAPTOPURINE. [Suspect]
     Active Substance: MERCAPTOPURINE
     Dosage: 16 MG, TABLET
     Route: 048
     Dates: start: 20190705
  30. VINCRISTINE SULFATE. [Suspect]
     Active Substance: VINCRISTINE SULFATE
     Dosage: 1.1 MG, UNK
     Route: 042
     Dates: start: 20191028
  31. CYTARABINE. [Suspect]
     Active Substance: CYTARABINE
     Indication: ACUTE LYMPHOCYTIC LEUKAEMIA
     Dosage: 45 MG, 1X/DAY, MILLIGRAM/SQ. METER;
     Route: 042
     Dates: start: 20190430, end: 20190503
  32. DOXORUBICIN HCL [Suspect]
     Active Substance: DOXORUBICIN HYDROCHLORIDE
     Indication: ACUTE LYMPHOCYTIC LEUKAEMIA
     Dosage: 17 MG, ONCE
     Route: 042
     Dates: start: 20190906, end: 20190906
  33. PEGASPARGASE [Suspect]
     Active Substance: PEGASPARGASE
     Indication: ACUTE LYMPHOCYTIC LEUKAEMIA
     Dosage: 1550 IU, ONCE, IU/M2
     Route: 042
     Dates: start: 20190514, end: 20190514
  34. METHOTREXATE SODIUM. [Suspect]
     Active Substance: METHOTREXATE SODIUM
     Dosage: 3250 MG, ONCE
     Route: 042
     Dates: start: 20190802, end: 20190802
  35. METHOTREXATE SODIUM. [Suspect]
     Active Substance: METHOTREXATE SODIUM
     Dosage: 12 MG, ONCE
     Route: 037
     Dates: start: 20190705, end: 20190705
  36. INCB018424 [Suspect]
     Active Substance: RUXOLITINIB
     Indication: ACUTE LYMPHOCYTIC LEUKAEMIA
     Dosage: 30 MG, 2X/DAY, TABLET, CONSOLIDATION: 14 DAYS ON 14 DAYS OFF
     Route: 048
     Dates: start: 20190430, end: 20190610
  37. CYCLOPHOSPHAMIDE. [Suspect]
     Active Substance: CYCLOPHOSPHAMIDE
     Indication: ACUTE LYMPHOCYTIC LEUKAEMIA
     Dosage: 620 MG, ONCE
     Route: 042
     Dates: start: 20190430, end: 20190430
  38. VINCRISTINE SULFATE. [Suspect]
     Active Substance: VINCRISTINE SULFATE
     Indication: ACUTE LYMPHOCYTIC LEUKAEMIA
     Dosage: 0.95 MG, ONCE, EACH DOSE FOR 4 DOSES
     Route: 042
     Dates: start: 20190514, end: 20190618
  39. VINCRISTINE SULFATE. [Suspect]
     Active Substance: VINCRISTINE SULFATE
     Dosage: 1.1 MG, UNK
     Route: 042
     Dates: start: 20191028, end: 20191028
  40. METHOTREXATE SODIUM. [Suspect]
     Active Substance: METHOTREXATE SODIUM
     Dosage: 12 MG, ONCE
     Route: 037
     Dates: start: 20190514, end: 20190514
  41. METHOTREXATE SODIUM. [Suspect]
     Active Substance: METHOTREXATE SODIUM
     Dosage: 12 MG, ONCE
     Route: 037
     Dates: start: 20191014, end: 20191014
  42. THIOGUANINE [Suspect]
     Active Substance: THIOGUANINE
     Indication: ACUTE LYMPHOCYTIC LEUKAEMIA
     Dosage: 40 MG, 1X/DAY, TABLET
     Route: 048
     Dates: start: 20191014
  43. METHOTREXATE SODIUM. [Suspect]
     Active Substance: METHOTREXATE SODIUM
     Dosage: 12 MG, ONCE
     Route: 037
     Dates: start: 20190521, end: 20190521
  44. INCB018424 [Suspect]
     Active Substance: RUXOLITINIB
     Dosage: 30 MG, 2X/DAY, TABLET, DELAYED INTENSIFICATION: 14 DAYS ON 14 DAYS OFF
     Route: 048
     Dates: start: 20190906, end: 20190919
  45. MERCAPTOPURINE. [Suspect]
     Active Substance: MERCAPTOPURINE
     Dosage: 36 MG, 1X/DAY  TABLET
     Route: 048
     Dates: start: 20190528, end: 20190610
  46. MELATONIN [Concomitant]
     Active Substance: MELATONIN
     Dosage: UNK
     Dates: start: 20190924

REACTIONS (3)
  - Pertussis [Recovered/Resolved]
  - Pancytopenia [Recovered/Resolved]
  - Streptococcal infection [Recovered/Resolved]

NARRATIVE: CASE EVENT DATE: 20191027
